FAERS Safety Report 5256129-1 (Version None)
Quarter: 2007Q1

REPORT INFORMATION
  Report Type: 
  Country: None (occurrence: None)
  Receive Date: 20070306
  Receipt Date: 20070221
  Transmission Date: 20070707
  Serious: Yes (Hospitalization, Other)
  Sender: FDA-Public Use
  Company Number: PHNU2006DE03904

PATIENT
  Age: 52 Year
  Sex: Female

DRUGS (1)
  1. GENTEAL (NVO) [Suspect]
     Dosage: SEVERAL TIMES DAILY
     Dates: start: 20061111, end: 20061113

REACTIONS (2)
  - ANAPHYLACTIC SHOCK [None]
  - DYSPNOEA [None]
